FAERS Safety Report 23039556 (Version 1)
Quarter: 2023Q4

REPORT INFORMATION
  Report Type: Spontaneous
  Country: FR (occurrence: FR)
  Receive Date: 20231006
  Receipt Date: 20231006
  Transmission Date: 20240109
  Serious: Yes (Other)
  Sender: FDA-Public Use
  Company Number: FR-SUN PHARMACEUTICAL INDUSTRIES LTD-2023RR-410961

PATIENT
  Age: 33 Year
  Sex: Female

DRUGS (4)
  1. QUETIAPINE [Interacting]
     Active Substance: QUETIAPINE
     Indication: Bipolar II disorder
     Dosage: 800 MILLIGRAM, DAILY, 400 MG: 1 PC IN THE MORNING, 1 PC IN THE EVENING
     Route: 048
     Dates: start: 202211
  2. PYRIDOXINE HYDROCHLORIDE\THIAMINE HYDROCHLORIDE [Interacting]
     Active Substance: PYRIDOXINE HYDROCHLORIDE\THIAMINE HYDROCHLORIDE
     Indication: Dyskinesia
     Dosage: 500 MILLIGRAM, DAILY
     Route: 048
     Dates: start: 2017
  3. PYRIDOXINE HYDROCHLORIDE\THIAMINE HYDROCHLORIDE [Interacting]
     Active Substance: PYRIDOXINE HYDROCHLORIDE\THIAMINE HYDROCHLORIDE
     Dosage: 500 MILLIGRAM, UNK
     Route: 048
     Dates: start: 20230309, end: 20230512
  4. CYAMEMAZINE [Interacting]
     Active Substance: CYAMEMAZINE
     Indication: Bipolar II disorder
     Dosage: 700 MILLIGRAM, DAILY
     Route: 048
     Dates: start: 2010

REACTIONS (2)
  - Bipolar II disorder [Recovered/Resolved]
  - Drug interaction [Recovered/Resolved]
